FAERS Safety Report 14071244 (Version 1)
Quarter: 2017Q4

REPORT INFORMATION
  Report Type: Spontaneous
  Country: US (occurrence: US)
  Receive Date: 20171010
  Receipt Date: 20171010
  Transmission Date: 20180321
  Serious: No
  Sender: FDA-Public Use
  Company Number: US-JNJFOC-20170931416

PATIENT
  Age: 74 Year
  Sex: Male

DRUGS (25)
  1. TRAMADOL. [Concomitant]
     Active Substance: TRAMADOL
  2. VITAMIN B COMPLEX [Concomitant]
     Active Substance: CYANOCOBALAMIN\DEXPANTHENOL\NIACINAMIDE\PYRIDOXINE HYDROCHLORIDE\RIBOFLAVIN 5^-PHOSPHATE SODIUM\THIAMINE HYDROCHLORIDE\VITAMIN B COMPLEX
  3. FLEXERIL [Concomitant]
     Active Substance: CYCLOBENZAPRINE HYDROCHLORIDE
  4. LABETALOL HCL [Concomitant]
     Active Substance: LABETALOL HYDROCHLORIDE
  5. METOPROLOL. [Concomitant]
     Active Substance: METOPROLOL
  6. LEVOTHYROXINE. [Concomitant]
     Active Substance: LEVOTHYROXINE
  7. TESSALON [Concomitant]
     Active Substance: BENZONATATE
  8. ACYCLOVIR. [Concomitant]
     Active Substance: ACYCLOVIR
  9. CLARITIN [Concomitant]
     Active Substance: LORATADINE
  10. ALLOPURINOL. [Concomitant]
     Active Substance: ALLOPURINOL
  11. LASIX [Concomitant]
     Active Substance: FUROSEMIDE
  12. PROCHLORPERAZINE EDISYLATE. [Concomitant]
     Active Substance: PROCHLORPERAZINE EDISYLATE
  13. ZOFRAN [Concomitant]
     Active Substance: ONDANSETRON HYDROCHLORIDE
  14. FLOMAX [Concomitant]
     Active Substance: TAMSULOSIN HYDROCHLORIDE
  15. XARELTO [Concomitant]
     Active Substance: RIVAROXABAN
  16. MILK OF MAGNESIA [Concomitant]
     Active Substance: MAGNESIUM HYDROXIDE
  17. LISINOPRIL. [Concomitant]
     Active Substance: LISINOPRIL
  18. IMBRUVICA [Suspect]
     Active Substance: IBRUTINIB
     Indication: NON-HODGKIN^S LYMPHOMA
     Route: 048
     Dates: start: 20170627
  19. TYLENOL [Concomitant]
     Active Substance: ACETAMINOPHEN
  20. VITAMIN D [Concomitant]
     Active Substance: CHOLECALCIFEROL
  21. NORVASC [Concomitant]
     Active Substance: AMLODIPINE BESYLATE
  22. DULCOLAX NOS [Concomitant]
     Active Substance: BISACODYL OR DOCUSATE SODIUM
  23. MIRALAX [Concomitant]
     Active Substance: POLYETHYLENE GLYCOL 3350
  24. NYSTATIN. [Concomitant]
     Active Substance: NYSTATIN
  25. ATIVAN [Concomitant]
     Active Substance: LORAZEPAM

REACTIONS (1)
  - Constipation [Recovering/Resolving]

NARRATIVE: CASE EVENT DATE: 201706
